FAERS Safety Report 14988416 (Version 1)
Quarter: 2018Q2

REPORT INFORMATION
  Report Type: Report from Study
  Country: IT (occurrence: IT)
  Receive Date: 20180608
  Receipt Date: 20180608
  Transmission Date: 20180711
  Serious: Yes (Death)
  Sender: FDA-Public Use
  Company Number: IT-PFIZER INC-2018234433

PATIENT
  Weight: .47 kg

DRUGS (4)
  1. IBUPROFEN. [Concomitant]
     Active Substance: IBUPROFEN
     Indication: PATENT DUCTUS ARTERIOSUS
     Dosage: UNK
  2. FLUCONAZOLE. [Suspect]
     Active Substance: FLUCONAZOLE
     Indication: INFECTION PROPHYLAXIS
     Dosage: UNK
     Route: 042
  3. GENTAMYCIN [Concomitant]
     Active Substance: GENTAMICIN
     Indication: INFECTION PROPHYLAXIS
     Dosage: UNK
     Route: 042
  4. AMPICILLIN SODIUM W/SULBACTAM SODIUM [Concomitant]
     Active Substance: AMPICILLIN SODIUM\SULBACTAM SODIUM
     Indication: INFECTION PROPHYLAXIS
     Dosage: UNK
     Route: 042

REACTIONS (4)
  - Drug ineffective [Fatal]
  - Candida infection [Fatal]
  - Fungal sepsis [Fatal]
  - Multiple organ dysfunction syndrome [Fatal]
